FAERS Safety Report 15458128 (Version 1)
Quarter: 2018Q4

REPORT INFORMATION
  Report Type: Report from Study
  Country: None (occurrence: AU)
  Receive Date: 20181003
  Receipt Date: 20181003
  Transmission Date: 20190204
  Serious: Yes (Hospitalization)
  Sender: FDA-Public Use
  Company Number: AU-ABBVIE-18S-008-2506039-00

PATIENT
  Sex: Female

DRUGS (1)
  1. DUODOPA [Suspect]
     Active Substance: CARBIDOPA\LEVODOPA
     Indication: PARKINSON^S DISEASE
     Dosage: 16 HOUR INFUSION?DOSAGE DECREASED
     Route: 050
     Dates: start: 20160404

REACTIONS (3)
  - Pneumonia [Not Recovered/Not Resolved]
  - Malaise [Unknown]
  - Dyskinesia [Not Recovered/Not Resolved]
